FAERS Safety Report 8334089 (Version 5)
Quarter: 2013Q2

REPORT INFORMATION
  Report Type: Report from Study
  Country: FR (occurrence: FR)
  Receive Date: 20120112
  Receipt Date: 20130523
  Transmission Date: 20140414
  Serious: Yes (Hospitalization)
  Sender: FDA-Public Use
  Company Number: FR-ROCHE-1029215

PATIENT
  Age: 64 Year
  Sex: Female
  Weight: 79 kg

DRUGS (7)
  1. TOCILIZUMAB [Suspect]
     Indication: RHEUMATOID ARTHRITIS
     Dosage: 4 MOST RECENT INFUSION PRIOR TO SAE ON 23/DEC/2011
     Route: 042
     Dates: start: 20111125, end: 20120105
  2. PREDNISONE [Concomitant]
     Route: 048
  3. SIMVASTATIN [Concomitant]
     Route: 048
  4. IXPRIM [Concomitant]
     Dosage: DOSE: 1800
     Route: 048
  5. SECTRAL [Concomitant]
     Dosage: DOSE 20
     Route: 065
  6. TRIATEC [Concomitant]
     Route: 065
  7. INEXIUM [Concomitant]
     Route: 065

REACTIONS (4)
  - Alanine aminotransferase increased [Recovered/Resolved]
  - Nausea [Recovered/Resolved]
  - Vomiting [Recovered/Resolved]
  - Abdominal pain [Recovered/Resolved]
